FAERS Safety Report 20744006 (Version 1)
Quarter: 2022Q2

REPORT INFORMATION
  Report Type: Spontaneous
  Country: US (occurrence: None)
  Receive Date: 20220422
  Receipt Date: 20220422
  Transmission Date: 20220721
  Serious: Yes (Other)
  Sender: FDA-Public Use
  Company Number: None

PATIENT
  Sex: Female

DRUGS (1)
  1. BENLYSTA [Suspect]
     Active Substance: BELIMUMAB
     Indication: Systemic lupus erythematosus
     Dosage: FREQUENCY : WEEKLY;?INJECT 200 MG UNDER THE SKIN (SUBCUTANEOUS  INJECTION) EVERY 7 DAYS?
     Route: 058
     Dates: start: 20190118

REACTIONS (2)
  - Surgery [None]
  - Therapy interrupted [None]
